FAERS Safety Report 9483815 (Version 2)
Quarter: 2013Q3

REPORT INFORMATION
  Report Type: Spontaneous
  Country: CA (occurrence: CA)
  Receive Date: 20130828
  Receipt Date: 20130828
  Transmission Date: 20140515
  Serious: Yes (Other)
  Sender: FDA-Public Use
  Company Number: CA-AMGEN-KDL290929

PATIENT
  Age: 59 Year
  Sex: Female
  Weight: 55.4 kg

DRUGS (11)
  1. ENBREL [Suspect]
     Indication: RHEUMATOID ARTHRITIS
     Dosage: UNK UNK, QWK
     Route: 058
     Dates: start: 20041224
  2. VITAMINS [Concomitant]
     Dosage: UNK UNK, UNK
  3. CALCIUM [Concomitant]
     Dosage: UNK UNK, UNK
  4. IRON [Concomitant]
  5. BECOSYM FORTE [Concomitant]
  6. FOLIC ACID [Concomitant]
  7. TOCOPHEROL [Concomitant]
  8. ALENDRONATE SODIUM [Concomitant]
     Dosage: UNK UNK, QWK
  9. CELECOXIB [Concomitant]
     Dosage: UNK UNK, PRN
  10. SALBUTAMOL [Concomitant]
     Dosage: 100 ?G, UNK
  11. FLUTICASONE PROPIONATE [Concomitant]
     Dosage: 20 ?G, UNK

REACTIONS (3)
  - Sarcoidosis [Recovering/Resolving]
  - Blister [Unknown]
  - Oral pain [Unknown]
